FAERS Safety Report 17331192 (Version 1)
Quarter: 2020Q1

REPORT INFORMATION
  Report Type: Spontaneous
  Country: JP (occurrence: JP)
  Receive Date: 20200127
  Receipt Date: 20200127
  Transmission Date: 20200409
  Serious: Yes (Hospitalization)
  Sender: FDA-Public Use
  Company Number: JP-TAIHO ONCOLOGY  INC-JPTT200022

PATIENT
  Age: 8 Decade
  Sex: Male
  Weight: 57.6 kg

DRUGS (1)
  1. LONSURF [Suspect]
     Active Substance: TIPIRACIL HYDROCHLORIDE\TRIFLURIDINE
     Indication: COLON CANCER METASTATIC
     Dosage: DETAILS NOT REPORTED
     Route: 048

REACTIONS (2)
  - Oedema peripheral [Unknown]
  - Anaemia [Unknown]
